FAERS Safety Report 13073942 (Version 1)
Quarter: 2016Q4

REPORT INFORMATION
  Report Type: Spontaneous
  Country: US (occurrence: US)
  Receive Date: 20161229
  Receipt Date: 20161229
  Transmission Date: 20170207
  Serious: No
  Sender: FDA-Public Use
  Company Number: US-IMPAX LABORATORIES, INC-2016-IPXL-02229

PATIENT
  Age: 68 Year
  Sex: Male
  Weight: 68 kg

DRUGS (1)
  1. OXYBUTYNIN CHLORIDE ER [Suspect]
     Active Substance: OXYBUTYNIN CHLORIDE
     Indication: POLYURIA
     Dosage: 15 MG, UNK
     Route: 065
     Dates: start: 2014, end: 20161010

REACTIONS (1)
  - Cystitis [Recovered/Resolved]

NARRATIVE: CASE EVENT DATE: 20161005
